FAERS Safety Report 4307791-9 (Version None)
Quarter: 2004Q1

REPORT INFORMATION
  Report Type: 
  Country: None (occurrence: None)
  Receive Date: 20040225
  Receipt Date: 20030617
  Transmission Date: 20041129
  Serious: Yes (Hospitalization)
  Sender: FDA-Public Use
  Company Number: WAES 0306USA02088

PATIENT
  Age: 78 Year
  Sex: Male

DRUGS (4)
  1. ZOCOR [Suspect]
     Indication: HYPERLIPIDAEMIA
     Dosage: 80 MG/DAILY/PO
     Route: 048
     Dates: end: 20030501
  2. ZOCOR [Suspect]
     Indication: LOW DENSITY LIPOPROTEIN
     Dosage: 80 MG/DAILY/PO
     Route: 048
     Dates: end: 20030501
  3. ZOCOR [Suspect]
     Indication: HYPERLIPIDAEMIA
     Dosage: 80 MG/DAILY/PO
     Route: 048
     Dates: start: 20030501, end: 20030601
  4. ZOCOR [Suspect]
     Indication: LOW DENSITY LIPOPROTEIN
     Dosage: 80 MG/DAILY/PO
     Route: 048
     Dates: start: 20030501, end: 20030601

REACTIONS (2)
  - DRUG INEFFECTIVE [None]
  - RHABDOMYOLYSIS [None]
